FAERS Safety Report 6475454-X (Version None)
Quarter: 2009Q4

REPORT INFORMATION
  Report Type: 
  Country: None (occurrence: None)
  Receive Date: 20091204
  Receipt Date: 20091119
  Transmission Date: 20100525
  Serious: Yes (Other)
  Sender: FDA-Public Use
  Company Number: GB-GENENTECH-295182

PATIENT
  Age: 74 Year
  Sex: Male

DRUGS (1)
  1. RANIBIZUMAB [Suspect]
     Indication: CHOROIDAL NEOVASCULARISATION
     Dosage: 0.5 MG, 1/MONTH
     Route: 031

REACTIONS (2)
  - VISUAL ACUITY REDUCED [None]
  - VITREOUS HAEMORRHAGE [None]
